FAERS Safety Report 4370971-0 (Version None)
Quarter: 2004Q2

REPORT INFORMATION
  Report Type: 
  Country: None (occurrence: None)
  Receive Date: 20040601
  Receipt Date: 20040518
  Transmission Date: 20050107
  Serious: Yes (Hospitalization)
  Sender: FDA-Public Use
  Company Number: 2004214574JP

PATIENT
  Age: 69 Year
  Sex: Male

DRUGS (6)
  1. CABASER (CABERGOLINE) TABLET, 1-4 MG [Suspect]
     Indication: PARKINSON'S DISEASE
     Dosage: 2 MG/DAYM, ORAL
     Route: 048
     Dates: start: 20020601
  2. PERMAX [Concomitant]
  3. EC DOPAL (BENSERAZIDE HYDROCHLORIDE) [Concomitant]
  4. LASIX [Concomitant]
  5. LANIRAPID (METILDIGOXIN) [Concomitant]
  6. WARFARIN SODIUM [Concomitant]

REACTIONS (1)
  - MITRAL VALVE DISEASE [None]
